FAERS Safety Report 16072050 (Version 2)
Quarter: 2019Q1

REPORT INFORMATION
  Report Type: Spontaneous
  Country: TR (occurrence: TR)
  Receive Date: 20190314
  Receipt Date: 20190322
  Transmission Date: 20190418
  Serious: Yes (Other)
  Sender: FDA-Public Use
  Company Number: TR-PFIZER INC-2019099699

PATIENT
  Age: 7 Year
  Sex: Female
  Weight: 29 kg

DRUGS (21)
  1. PURINETHOL [Concomitant]
     Active Substance: MERCAPTOPURINE
     Dosage: 100 MG, 1X1
     Route: 048
  2. ERWINASE [ASPARAGINASE] [Suspect]
     Active Substance: ASPARAGINASE ERWINIA CHRYSANTHEMI
     Indication: CHEMOTHERAPY
     Dosage: UNK
     Route: 042
  3. URSOFALK [Concomitant]
     Active Substance: URSODIOL
     Dosage: 250 MG, 2X1
     Route: 048
  4. CALCIMAX D3 [CALCIUM CARBONATE;COLECALCIFEROL] [Concomitant]
     Dosage: 1 TABLET 2X1
     Route: 048
  5. METHOTREXATE SODIUM. [Suspect]
     Active Substance: METHOTREXATE SODIUM
     Indication: ACUTE LYMPHOCYTIC LEUKAEMIA
     Dosage: UNK
     Route: 042
  6. VINCRISTINE SULFATE. [Suspect]
     Active Substance: VINCRISTINE SULFATE
     Indication: CHEMOTHERAPY
     Dosage: UNK
     Route: 042
  7. DOXORUBICIN HCL [Suspect]
     Active Substance: DOXORUBICIN HYDROCHLORIDE
     Indication: CHEMOTHERAPY
     Dosage: UNK
     Route: 042
  8. ZOFRAN [Concomitant]
     Active Substance: ONDANSETRON HYDROCHLORIDE
     Dosage: 2CC 3X1
     Route: 042
  9. LANSOR [Concomitant]
     Active Substance: LANSOPRAZOLE
     Dosage: 30 MG, 1X1
     Route: 048
  10. CONTRAMAL [Concomitant]
     Active Substance: TRAMADOL HYDROCHLORIDE
     Dosage: 6DZM 4X1
     Route: 042
  11. DEXTROSE 5% [Concomitant]
     Active Substance: DEXTROSE
     Dosage: 5% DEXTROSE + 09% NACL 62 CC/H (1 AMPOULE KCL PER 500CC)
     Route: 042
  12. DUPHALAC [Concomitant]
     Active Substance: LACTULOSE
     Dosage: 10CC 3X1
     Route: 048
  13. RANITAB [RANITIDINE HYDROCHLORIDE] [Concomitant]
     Dosage: 2CC 2X1
     Route: 042
  14. PEREBRON [OXOLAMINE PHOSPHATE] [Concomitant]
     Dosage: 5CC 3X1
     Route: 048
  15. DIAZOMID [Concomitant]
     Active Substance: ACETAZOLAMIDE
     Dosage: 250 MG, 3X1
     Route: 048
  16. GAVISCON [CALCIUM CARBONATE;SODIUM ALGINATE;SODIUM BICARBONATE] [Concomitant]
     Dosage: 5CC 3X1
     Route: 048
  17. APIKOBAL [Concomitant]
     Active Substance: CYANOCOBALAMIN\PYRIDOXINE HYDROCHLORIDE\THIAMINE
     Dosage: 250 MG, 1X1
     Route: 048
  18. NACL [Concomitant]
     Active Substance: SODIUM CHLORIDE
     Dosage: 5% DEXTROSE + 09% NACL 62 CC/H (1 AMPOULE KCL PER 500CC)
     Route: 042
  19. ARA-C [Suspect]
     Active Substance: CYTARABINE
     Dosage: UNK
     Route: 042
  20. PROZAC [Concomitant]
     Active Substance: FLUOXETINE HYDROCHLORIDE
     Dosage: 5CC 1X1
     Route: 048
  21. AMBISOME [Concomitant]
     Active Substance: AMPHOTERICIN B
     Dosage: 21.6CC 1X1
     Route: 042

REACTIONS (7)
  - Skin ulcer [Recovered/Resolved]
  - Alopecia [Recovered/Resolved]
  - Malnutrition [Recovered/Resolved]
  - Immunosuppression [Recovered/Resolved]
  - Stomatitis [Recovered/Resolved]
  - Nausea [Recovered/Resolved]
  - Fatigue [Recovered/Resolved]
